FAERS Safety Report 16681068 (Version 1)
Quarter: 2019Q3

REPORT INFORMATION
  Report Type: Spontaneous
  Country: GB (occurrence: GB)
  Receive Date: 20190808
  Receipt Date: 20190808
  Transmission Date: 20191004
  Serious: Yes (Other)
  Sender: FDA-Public Use
  Company Number: GB-TEVA-2019-GB-1089626

PATIENT
  Age: 47 Year
  Sex: Female
  Weight: 141 kg

DRUGS (7)
  1. METRONIDAZOLE. [Suspect]
     Active Substance: METRONIDAZOLE
     Indication: TOOTH INFECTION
  2. AMOXICILLIN. [Concomitant]
     Active Substance: AMOXICILLIN
     Indication: TOOTH INFECTION
  3. TRAMADOL. [Concomitant]
     Active Substance: TRAMADOL
     Dosage: TAKE 1 OR 2 AS DIRECTED
     Dates: start: 20190214
  4. FOSTAIR [Concomitant]
     Active Substance: BECLOMETHASONE\FORMOTEROL
     Dates: start: 20190218
  5. CINNARIZINE [Concomitant]
     Active Substance: CINNARIZINE
     Dosage: TWO 3 TIMES A DAY
     Dates: start: 20190214
  6. SALBUTAMOL [Concomitant]
     Active Substance: ALBUTEROL
     Route: 055
     Dates: start: 20190218
  7. TRANEXAMIC ACID. [Concomitant]
     Active Substance: TRANEXAMIC ACID
     Dosage: 6 DOSAGE FORMS
     Dates: start: 20190214

REACTIONS (4)
  - Paraesthesia [Unknown]
  - Lip swelling [Recovered/Resolved]
  - Speech disorder [Unknown]
  - Hypersensitivity [Unknown]
